FAERS Safety Report 12621669 (Version 1)
Quarter: 2016Q3

REPORT INFORMATION
  Report Type: Spontaneous
  Country: US (occurrence: None)
  Receive Date: 20160803
  Receipt Date: 20160803
  Transmission Date: 20161109
  Serious: Yes (Death)
  Sender: FDA-Public Use
  Company Number: None

PATIENT
  Age: 11 Year
  Sex: Female
  Weight: 58 kg

DRUGS (3)
  1. ETOPOSIDE (VP-16) [Suspect]
     Active Substance: ETOPOSIDE
     Dates: end: 20160704
  2. CARBOPLATIN. [Suspect]
     Active Substance: CARBOPLATIN
     Dates: end: 20160701
  3. DDAVP [Concomitant]
     Active Substance: DESMOPRESSIN ACETATE

REACTIONS (10)
  - Aspiration [None]
  - Platelet count decreased [None]
  - Vomiting [None]
  - Metabolic acidosis [None]
  - Pulseless electrical activity [None]
  - Tachypnoea [None]
  - Respiratory distress [None]
  - Bradycardia [None]
  - Respiratory acidosis [None]
  - Pyrexia [None]

NARRATIVE: CASE EVENT DATE: 20160713
